FAERS Safety Report 19170804 (Version 3)
Quarter: 2021Q2

REPORT INFORMATION
  Report Type: Report from Study
  Country: US (occurrence: US)
  Receive Date: 20210422
  Receipt Date: 20210525
  Transmission Date: 20210717
  Serious: Yes (Hospitalization, Other)
  Sender: FDA-Public Use
  Company Number: US-UCBSA-2021012188

PATIENT
  Age: 64 Year
  Sex: Female
  Weight: 70.76 kg

DRUGS (3)
  1. BRIVARACETAM [Suspect]
     Active Substance: BRIVARACETAM
     Dosage: 100MG 2 TABS MORNING AND 2 TABS IN THE EVENING
     Route: 048
     Dates: start: 202103
  2. BRIVARACETAM [Suspect]
     Active Substance: BRIVARACETAM
     Indication: SEIZURE
     Dosage: 100MG 2 TABS MORNING AND 2 TABS IN THE EVENING
     Route: 048
     Dates: start: 2014
  3. BRIVARACETAM [Suspect]
     Active Substance: BRIVARACETAM
     Indication: EPILEPSY
     Dosage: 100MG 2 TABS MORNING AND 2 TABS IN THE EVENING
     Route: 048
     Dates: end: 20210228

REACTIONS (10)
  - Injury [Not Recovered/Not Resolved]
  - Seizure [Recovered/Resolved]
  - Product availability issue [Unknown]
  - Head injury [Recovered/Resolved]
  - Myocardial infarction [Unknown]
  - Cerebrovascular accident [Unknown]
  - Inability to afford medication [Unknown]
  - Therapy interrupted [Unknown]
  - Overdose [Unknown]
  - Fall [Recovered/Resolved]

NARRATIVE: CASE EVENT DATE: 2014
